FAERS Safety Report 9636484 (Version 1)
Quarter: 2013Q4

REPORT INFORMATION
  Report Type: Report from Study
  Country: SE (occurrence: SE)
  Receive Date: 20131021
  Receipt Date: 20131021
  Transmission Date: 20140711
  Serious: Yes (Hospitalization, Other)
  Sender: FDA-Public Use
  Company Number: ES-UCBSA-100682

PATIENT
  Age: 56 Year
  Sex: Female

DRUGS (2)
  1. CIMZIA [Suspect]
     Indication: RHEUMATOID ARTHRITIS
     Dosage: DOSE: 200 MG
     Dates: start: 20120815
  2. METHOTREXATE [Suspect]
     Dosage: 20 MG
     Dates: start: 20100204, end: 20131007

REACTIONS (2)
  - Abscess [Recovered/Resolved]
  - Hidradenitis [Unknown]
